FAERS Safety Report 16114777 (Version 2)
Quarter: 2019Q3

REPORT INFORMATION
  Report Type: Report from Study
  Country: PL (occurrence: PL)
  Receive Date: 20190325
  Receipt Date: 20190703
  Transmission Date: 20191004
  Serious: Yes (Other)
  Sender: FDA-Public Use
  Company Number: PL-CHIESI USA, INC.-PL-2019CHI000111

PATIENT

DRUGS (3)
  1. CAFFEINE CITRATE. [Concomitant]
     Active Substance: CAFFEINE CITRATE
     Indication: INFANTILE APNOEA
     Dosage: 22 MG/KG, QD (18 MG)
     Dates: start: 20190311
  2. KETAMINE [Concomitant]
     Active Substance: KETAMINE
     Indication: PREMEDICATION
     Dosage: 1 MG/KG, (0.8 MG)
     Dates: start: 20190311, end: 20190311
  3. CUROSURF [Suspect]
     Active Substance: PORACTANT ALFA
     Indication: NEONATAL RESPIRATORY DISTRESS SYNDROME
     Dosage: 2 ML, SINGLE
     Route: 039
     Dates: start: 20190311, end: 20190311

REACTIONS (2)
  - Neonatal hypoxia [Recovered/Resolved]
  - Product administration error [Recovered/Resolved]

NARRATIVE: CASE EVENT DATE: 20190311
